FAERS Safety Report 6578151-5 (Version None)
Quarter: 2010Q1

REPORT INFORMATION
  Report Type: 
  Country: None (occurrence: None)
  Receive Date: 20100211
  Receipt Date: 20100209
  Transmission Date: 20100710
  Serious: Yes (Life-Threatening)
  Sender: FDA-Public Use
  Company Number: FR-SANOFI-AVENTIS-2010SA007411

PATIENT
  Age: 91 Year
  Sex: Male

DRUGS (4)
  1. XATRAL [Suspect]
     Route: 048
     Dates: end: 20100110
  2. IMOVANE [Suspect]
     Indication: INSOMNIA
     Route: 048
     Dates: end: 20100111
  3. APROVEL [Suspect]
     Route: 048
     Dates: start: 20100108, end: 20100111
  4. FUROSEMIDE [Concomitant]

REACTIONS (2)
  - HEPATIC ENCEPHALOPATHY [None]
  - HEPATIC FAILURE [None]
